FAERS Safety Report 5392355-9 (Version None)
Quarter: 2007Q3

REPORT INFORMATION
  Report Type: 
  Country: None (occurrence: None)
  Receive Date: 20070720
  Receipt Date: 20070712
  Transmission Date: 20080115
  Serious: Yes (Hospitalization)
  Sender: FDA-Public Use
  Company Number: B0479843A

PATIENT
  Age: 49 Year
  Sex: Female

DRUGS (1)
  1. NICABATE CQ CLEAR 21MG [Suspect]
     Route: 062
     Dates: start: 20070706, end: 20070706

REACTIONS (4)
  - HEADACHE [None]
  - OVERDOSE [None]
  - VISION BLURRED [None]
  - VOMITING [None]
